FAERS Safety Report 4334410-8 (Version None)
Quarter: 2004Q1

REPORT INFORMATION
  Report Type: 
  Country: None (occurrence: None)
  Receive Date: 20040325
  Receipt Date: 20040105
  Transmission Date: 20041129
  Serious: No
  Sender: FDA-Public Use
  Company Number: USA040155810

PATIENT
  Age: 61 Year
  Sex: Female

DRUGS (2)
  1. FORTEO [Suspect]
     Indication: OSTEOPOROSIS
     Dates: start: 20031101
  2. ULTRACET [Concomitant]

REACTIONS (4)
  - BONE PAIN [None]
  - DIFFICULTY IN WALKING [None]
  - MUSCLE CRAMP [None]
  - PAIN [None]
